FAERS Safety Report 6768512-3 (Version None)
Quarter: 2010Q2

REPORT INFORMATION
  Report Type: 
  Country: None (occurrence: None)
  Receive Date: 20100614
  Receipt Date: 20100602
  Transmission Date: 20101027
  Serious: Yes (Hospitalization)
  Sender: FDA-Public Use
  Company Number: US-PFIZER INC-2010041169

PATIENT
  Sex: Female

DRUGS (3)
  1. SUNITINIB MALATE [Suspect]
     Indication: RENAL CELL CARCINOMA
     Dosage: 50 MG, 1X/DAY
     Route: 048
     Dates: start: 20100223
  2. MORPHINE [Suspect]
     Indication: PAIN
     Dosage: 30 MG, UNK
     Route: 048
     Dates: start: 20100323
  3. CANDESARTAN CILEXETIL [Concomitant]
     Dosage: UNK
     Dates: start: 20100315

REACTIONS (4)
  - HYPONATRAEMIA [None]
  - HYPOVOLAEMIA [None]
  - NEUTROPENIA [None]
  - PANCREATITIS [None]
